FAERS Safety Report 9249438 (Version 3)
Quarter: 2013Q4

REPORT INFORMATION
  Report Type: Spontaneous
  Country: DK (occurrence: CA)
  Receive Date: 20130423
  Receipt Date: 20131212
  Transmission Date: 20140711
  Serious: Yes (Death)
  Sender: FDA-Public Use
  Company Number: CA-FRI-1000044577

PATIENT
  Age: 68 Year
  Sex: Male

DRUGS (3)
  1. ESCITALOPRAM [Suspect]
     Indication: DEPRESSION
     Route: 048
     Dates: start: 2012, end: 2012
  2. ESCITALOPRAM [Suspect]
     Dosage: 20 MG
     Route: 048
     Dates: start: 2012, end: 2012
  3. SEROQUEL [Concomitant]
     Dosage: 25 MG
     Route: 048
     Dates: start: 2012

REACTIONS (3)
  - Completed suicide [Fatal]
  - Depression [Fatal]
  - Anxiety [Fatal]
